FAERS Safety Report 9126965 (Version 1)
Quarter: 2013Q1

REPORT INFORMATION
  Report Type: Spontaneous
  Country: US (occurrence: US)
  Receive Date: 20130122
  Receipt Date: 20130122
  Transmission Date: 20140127
  Serious: Yes (Death)
  Sender: FDA-Public Use
  Company Number: US-GLAXOSMITHKLINE-A1009067A

PATIENT
  Age: 55 Year
  Sex: Female

DRUGS (6)
  1. VOTRIENT [Suspect]
     Indication: PRODUCT USED FOR UNKNOWN INDICATION
     Dosage: 200MG SEE DOSAGE TEXT
     Route: 048
  2. ATIVAN [Concomitant]
  3. REGLAN [Concomitant]
  4. OMEPRAZOLE [Concomitant]
  5. SENNA [Concomitant]
  6. COLACE [Concomitant]

REACTIONS (1)
  - Death [Fatal]
